FAERS Safety Report 26092734 (Version 1)
Quarter: 2025Q4

REPORT INFORMATION
  Report Type: Spontaneous
  Country: NZ (occurrence: NZ)
  Receive Date: 20251126
  Receipt Date: 20251126
  Transmission Date: 20260118
  Serious: Yes (Other)
  Sender: MYLAN
  Company Number: NZ-MYLANLABS-2025M1099452

PATIENT
  Age: 17 Year
  Sex: Male

DRUGS (1)
  1. CLOZARIL [Suspect]
     Active Substance: CLOZAPINE
     Indication: Schizophrenia
     Dosage: UNK
     Dates: start: 20251029, end: 20251117

REACTIONS (2)
  - Myocarditis [Unknown]
  - Product use issue [Unknown]

NARRATIVE: CASE EVENT DATE: 20251029
